FAERS Safety Report 8805691 (Version 1)
Quarter: 2012Q4

REPORT INFORMATION
  Report Type: Spontaneous
  Country: PL (occurrence: None)
  Receive Date: 20120917
  Receipt Date: 20120917
  Transmission Date: 20130627
  Serious: Yes (Other)
  Sender: FDA-Public Use
  Company Number: 2012P1056752

PATIENT
  Age: 27 Year
  Sex: Female
  Weight: 70 kg

DRUGS (3)
  1. FLUOXETINE [Suspect]
     Route: 048
     Dates: start: 20101109, end: 20110517
  2. FLUOXETINE [Suspect]
     Route: 048
     Dates: start: 20101109, end: 20110517
  3. TRAZODONE HYDROCHLORIDE [Suspect]
     Dosage: 25 MG; PRN; PO
     Route: 048

REACTIONS (1)
  - Large intestinal haemorrhage [None]
